FAERS Safety Report 6493656-3 (Version None)
Quarter: 2009Q4

REPORT INFORMATION
  Report Type: 
  Country: None (occurrence: None)
  Receive Date: 20091214
  Receipt Date: 20091202
  Transmission Date: 20100525
  Serious: Yes (Hospitalization)
  Sender: FDA-Public Use
  Company Number: B0593738A

PATIENT
  Age: 37 Year
  Sex: Male

DRUGS (5)
  1. EPIVIR [Suspect]
     Indication: ACQUIRED IMMUNODEFICIENCY SYNDROME
     Dosage: 300MG TWICE PER DAY
     Route: 048
     Dates: start: 20070509
  2. DOXORUBICIN HCL [Suspect]
     Indication: ACQUIRED IMMUNODEFICIENCY SYNDROME
     Route: 042
     Dates: start: 20070101, end: 20070101
  3. ZERIT [Suspect]
     Indication: ACQUIRED IMMUNODEFICIENCY SYNDROME
     Dosage: 80MG PER DAY
     Route: 048
     Dates: start: 20070509
  4. VIRACEPT [Suspect]
     Indication: ACQUIRED IMMUNODEFICIENCY SYNDROME
     Dosage: 2500MG PER DAY
     Route: 048
     Dates: start: 20070509
  5. DOXIL [Concomitant]
     Indication: HIV INFECTION
     Route: 042
     Dates: start: 20070101

REACTIONS (6)
  - DYSPNOEA [None]
  - GENERALISED OEDEMA [None]
  - KAPOSI'S SARCOMA [None]
  - OEDEMA PERIPHERAL [None]
  - PLEURAL EFFUSION [None]
  - SKIN LESION [None]
